FAERS Safety Report 7438413-6 (Version None)
Quarter: 2011Q2

REPORT INFORMATION
  Report Type: 
  Country: None (occurrence: None)
  Receive Date: 20110426
  Receipt Date: 20110408
  Transmission Date: 20111010
  Serious: Yes (Hospitalization, Disabling, Other)
  Sender: FDA-Public Use
  Company Number: US-BAYER-201019639NA

PATIENT
  Age: 64 Year
  Sex: Female

DRUGS (5)
  1. KLONOPIN [Concomitant]
     Dosage: DAILY DOSE 5 MG
  2. CORTICOSTEROIDS [Concomitant]
     Route: 042
  3. INTERFERON BETA-1B [Suspect]
     Dosage: 8 MIU, QOD
  4. INTERFERON BETA-1B [Suspect]
     Indication: MULTIPLE SCLEROSIS
     Dosage: 8 MIU, QOD
     Dates: start: 20090918
  5. INTERFERON BETA-1B [Suspect]
     Dosage: 8 MIU, QOD

REACTIONS (14)
  - JOINT STIFFNESS [None]
  - ABASIA [None]
  - BALANCE DISORDER [None]
  - INJECTION SITE PAIN [None]
  - HYPOAESTHESIA [None]
  - PAIN IN EXTREMITY [None]
  - PERIPHERAL COLDNESS [None]
  - DERMATITIS ALLERGIC [None]
  - INJECTION SITE URTICARIA [None]
  - MULTIPLE SCLEROSIS RELAPSE [None]
  - PARAESTHESIA [None]
  - DEFAECATION URGENCY [None]
  - POLLAKIURIA [None]
  - HYPERAESTHESIA [None]
